FAERS Safety Report 19971211 (Version 1)
Quarter: 2021Q4

REPORT INFORMATION
  Report Type: Spontaneous
  Country: US (occurrence: US)
  Receive Date: 20211020
  Receipt Date: 20211020
  Transmission Date: 20220303
  Serious: Yes (Hospitalization)
  Sender: FDA-Public Use
  Company Number: US-JNJFOC-20211011387

PATIENT
  Age: 50 Year
  Sex: Male
  Weight: 72 kg

DRUGS (4)
  1. TYLENOL [Suspect]
     Active Substance: ACETAMINOPHEN
     Indication: Headache
     Dosage: ACETAMINOPHEN 6-8 G (15 TABLETS) DAILY FOR 14 DAYS
     Route: 048
     Dates: start: 20030107, end: 20030121
  2. VICODIN [Suspect]
     Active Substance: ACETAMINOPHEN\HYDROCODONE BITARTRATE
     Indication: Headache
     Dosage: (ACETAMINOPHEN 500 MG/HYDROCODONE 5 MG) 2-3 G (4-6 TABLETS) DAILY FOR 6 DAYS
     Route: 048
     Dates: start: 20030115, end: 20030121
  3. PAXIL [Concomitant]
     Active Substance: PAROXETINE HYDROCHLORIDE
     Indication: Product used for unknown indication
     Dosage: UNKNOWN DOSE FOR 36 MONTHS
     Route: 065
     Dates: end: 20030121
  4. KLONOPIN [Concomitant]
     Active Substance: CLONAZEPAM
     Indication: Product used for unknown indication
     Dosage: UNKNOWN DOSE FOR 12 MONTHS
     Route: 065
     Dates: end: 20030121

REACTIONS (3)
  - Acute hepatic failure [Recovered/Resolved]
  - Acute kidney injury [Recovered/Resolved]
  - Accidental overdose [Recovered/Resolved]
